FAERS Safety Report 5145347-9 (Version None)
Quarter: 2006Q4

REPORT INFORMATION
  Report Type: 
  Country: None (occurrence: None)
  Receive Date: 20061101
  Receipt Date: 20061020
  Transmission Date: 20070319
  Serious: Yes (Other)
  Sender: FDA-Public Use
  Company Number: 2006SP004566

PATIENT
  Age: 50 Year
  Sex: Female
  Weight: 85 kg

DRUGS (3)
  1. DESLORATADINE [Suspect]
     Indication: CHRONIC SINUSITIS
     Dosage: 5 MG; BID; PO
     Route: 048
     Dates: start: 20061012, end: 20061019
  2. FILICINE [Concomitant]
  3. FERUM [Concomitant]

REACTIONS (7)
  - COUGH [None]
  - DRUG ADMINISTRATION ERROR [None]
  - HEADACHE [None]
  - HYPERSENSITIVITY [None]
  - LARYNGEAL OEDEMA [None]
  - OVERDOSE [None]
  - WHEEZING [None]
